FAERS Safety Report 15309829 (Version 1)
Quarter: 2018Q3

REPORT INFORMATION
  Report Type: Spontaneous
  Country: US (occurrence: US)
  Receive Date: 20180812
  Receipt Date: 20180812
  Transmission Date: 20181010
  Serious: Yes (Life-Threatening, Hospitalization, Disabling, Other)
  Sender: FDA-Public Use
  Company Number: None

PATIENT
  Age: 45 Year
  Sex: Female
  Weight: 54.9 kg

DRUGS (3)
  1. VITAMIN D [Concomitant]
     Active Substance: CHOLECALCIFEROL
  2. LEVOFLOXACIN 500MG TABLET [Suspect]
     Active Substance: LEVOFLOXACIN
     Indication: INFECTION
     Dosage: ?          QUANTITY:1 TABLET(S);?
     Route: 048
     Dates: start: 20140806, end: 20140808
  3. CIPROFLOXACIN. [Suspect]
     Active Substance: CIPROFLOXACIN
     Indication: PERITONITIS
     Dosage: ?          QUANTITY:1 TABLET(S);?
     Route: 048
     Dates: start: 20140809, end: 20140819

REACTIONS (15)
  - Loss of consciousness [None]
  - Dyspnoea [None]
  - Mental impairment [None]
  - Gait disturbance [None]
  - Intra-abdominal fluid collection [None]
  - Tendon disorder [None]
  - Tendon pain [None]
  - Blood pressure fluctuation [None]
  - Heart rate irregular [None]
  - Diaphragmalgia [None]
  - Diarrhoea [None]
  - Memory impairment [None]
  - Hypotension [None]
  - Weight decreased [None]
  - Clostridium difficile infection [None]

NARRATIVE: CASE EVENT DATE: 20140806
